FAERS Safety Report 7941007-7 (Version None)
Quarter: 2011Q4

REPORT INFORMATION
  Report Type: 
  Country: None (occurrence: None)
  Receive Date: 20111128
  Receipt Date: 20111118
  Transmission Date: 20120403
  Serious: Yes (Hospitalization, Other)
  Sender: FDA-Public Use
  Company Number: US-JNJFOC-20110410502

PATIENT
  Sex: Female

DRUGS (7)
  1. LEVAQUIN [Suspect]
     Indication: POST PROCEDURAL INFECTION
     Route: 048
     Dates: start: 20090409
  2. PREDNISONE TAB [Suspect]
     Indication: ADRENOGENITAL SYNDROME
     Dates: start: 19930101
  3. LEVAQUIN [Suspect]
     Indication: BACTERIAL INFECTION
     Route: 048
     Dates: start: 20090409
  4. AMLODIPINE [Concomitant]
     Indication: HYPERTENSION
     Dates: start: 20000101
  5. DECADRON [Suspect]
     Indication: ADRENOGENITAL SYNDROME
     Dates: start: 19930101
  6. HYDROCORTISONE [Suspect]
     Indication: ADRENOGENITAL SYNDROME
     Dates: start: 19930101
  7. DEXAMETHASONE [Suspect]
     Indication: ADRENOGENITAL SYNDROME
     Dates: start: 19930101

REACTIONS (5)
  - TRIGGER FINGER [None]
  - TENOSYNOVITIS STENOSANS [None]
  - TENDON DISORDER [None]
  - TENDON RUPTURE [None]
  - TENDONITIS [None]
